FAERS Safety Report 4731846-8 (Version None)
Quarter: 2005Q3

REPORT INFORMATION
  Report Type: 
  Country: None (occurrence: None)
  Receive Date: 20050725
  Receipt Date: 20050203
  Transmission Date: 20060218
  Serious: Yes (Life-Threatening, Disabling)
  Sender: FDA-Public Use
  Company Number: WAES 0502USA00450

PATIENT
  Age: 51 Year
  Sex: Female

DRUGS (5)
  1. VIOXX [Suspect]
     Indication: ARTHRITIS
     Dosage: SEE IMAGE
     Route: 048
     Dates: start: 20010101, end: 20040930
  2. VIOXX [Suspect]
     Indication: PAIN MANAGEMENT
     Dosage: SEE IMAGE
     Route: 048
     Dates: start: 20010101, end: 20040930
  3. AMARYL [Concomitant]
  4. PREVACID [Concomitant]
  5. LISINOPRIL [Concomitant]

REACTIONS (2)
  - BLOOD PRESSURE INCREASED [None]
  - CHEST PAIN [None]
